FAERS Safety Report 14660115 (Version 2)
Quarter: 2019Q3

REPORT INFORMATION
  Report Type: Spontaneous
  Country: IT (occurrence: IT)
  Receive Date: 20180320
  Receipt Date: 20190708
  Transmission Date: 20191004
  Serious: Yes (Death)
  Sender: FDA-Public Use
  Company Number: IT-ABBVIE-18P-083-2292604-00

PATIENT
  Age: 25 Year
  Sex: Male

DRUGS (1)
  1. TESTOSTERONE. [Suspect]
     Active Substance: TESTOSTERONE
     Indication: DRUG ABUSE
     Route: 065

REACTIONS (3)
  - Eosinophilic myocarditis [Fatal]
  - Sudden cardiac death [Fatal]
  - Drug abuse [Fatal]
